FAERS Safety Report 4501320-2 (Version None)
Quarter: 2004Q4

REPORT INFORMATION
  Report Type: 
  Country: None (occurrence: None)
  Receive Date: 20041109
  Receipt Date: 20041025
  Transmission Date: 20050328
  Serious: Yes (Other)
  Sender: FDA-Public Use
  Company Number: GBS040915536

PATIENT
  Age: 24 Year
  Sex: Male

DRUGS (6)
  1. STRATTERA [Suspect]
     Indication: ATTENTION DEFICIT/HYPERACTIVITY DISORDER
     Dosage: 40 MG DAY
     Dates: start: 20040817
  2. MINOCYCLINE HCL [Concomitant]
  3. LANSOPRAZOLE [Concomitant]
  4. CARBAMAZEPINE [Concomitant]
  5. NITRAZEPAM [Concomitant]
  6. DIAZEPAM [Concomitant]

REACTIONS (3)
  - EJACULATION DISORDER [None]
  - LOSS OF LIBIDO [None]
  - SEXUAL DYSFUNCTION [None]
